FAERS Safety Report 8083201-3 (Version None)
Quarter: 2012Q1

REPORT INFORMATION
  Report Type: 
  Country: None (occurrence: None)
  Receive Date: 20120127
  Receipt Date: 20110202
  Transmission Date: 20120608
  Serious: No
  Sender: FDA-Public Use
  Company Number: US-ABBOTT-11P-163-0702175-00

PATIENT
  Sex: Female

DRUGS (2)
  1. HUMIRA [Suspect]
     Indication: HIDRADENITIS
     Route: 058
     Dates: start: 20100901
  2. OXYCODONE HCL [Concomitant]
     Indication: PAIN

REACTIONS (5)
  - PNEUMONIA [None]
  - JOINT LOCK [None]
  - RESTLESSNESS [None]
  - DIARRHOEA [None]
  - FEELING ABNORMAL [None]
